FAERS Safety Report 10137552 (Version 2)
Quarter: 2014Q2

REPORT INFORMATION
  Report Type: Report from Study
  Country: US (occurrence: US)
  Receive Date: 20140429
  Receipt Date: 20140429
  Transmission Date: 20141212
  Serious: Yes (Other)
  Sender: FDA-Public Use
  Company Number: US-BAYER-2014-030539

PATIENT
  Age: 71 Year
  Sex: Female
  Weight: 62.13 kg

DRUGS (2)
  1. STIVARGA [Suspect]
     Indication: COLORECTAL CANCER
     Dosage: DOSE REGIMEN: 4X40 MG
     Route: 048
     Dates: start: 20130614, end: 20130711
  2. STIVARGA [Suspect]
     Indication: COLORECTAL CANCER
     Dosage: DOSE REGIMEN: 3X40 MG
     Route: 048
     Dates: start: 20130711, end: 20131008

REACTIONS (5)
  - Colorectal cancer [None]
  - Mucosal inflammation [None]
  - Dehydration [None]
  - Diarrhoea [None]
  - Urinary tract infection [None]
